FAERS Safety Report 5009980-7 (Version None)
Quarter: 2006Q2

REPORT INFORMATION
  Report Type: 
  Country: None (occurrence: None)
  Receive Date: 20060522
  Receipt Date: 20060510
  Transmission Date: 20061013
  Serious: Yes (Hospitalization)
  Sender: FDA-Public Use
  Company Number: 2006-BP-05388RO

PATIENT
  Age: 16 Year
  Sex: Male

DRUGS (1)
  1. PSEUDOEPHEDRINE (PSEUDOEPHEDRINE) [Suspect]
     Indication: UPPER RESPIRATORY TRACT INFECTION
     Dosage: 180 MG/DAY X 1 DAY, PO
     Route: 048

REACTIONS (9)
  - ACUTE MYOCARDIAL INFARCTION [None]
  - ARTERIOSPASM CORONARY [None]
  - BACTERIAL INFECTION [None]
  - BETA HAEMOLYTIC STREPTOCOCCAL INFECTION [None]
  - CARDIAC PROCEDURE COMPLICATION [None]
  - CATHETER SITE RELATED REACTION [None]
  - EJECTION FRACTION DECREASED [None]
  - THERAPY NON-RESPONDER [None]
  - VENTRICULAR HYPOKINESIA [None]
